FAERS Safety Report 9506734 (Version 1)
Quarter: 2013Q3

REPORT INFORMATION
  Report Type: Spontaneous
  Country: US (occurrence: None)
  Receive Date: 20130905
  Receipt Date: 20130905
  Transmission Date: 20140515
  Serious: No
  Sender: FDA-Public Use
  Company Number: None

PATIENT
  Age: 59 Year
  Sex: Female
  Weight: 41.8 kg

DRUGS (1)
  1. OSAPLEX MK-7 60 PKT. XYMOGEN [Suspect]
     Indication: MINERAL SUPPLEMENTATION
     Dosage: 1/2 DOSE - 1 PACKET (NOT GIVEN) ORALLY
     Route: 048

REACTIONS (1)
  - Gastrointestinal disorder [None]
